FAERS Safety Report 4596710-6 (Version None)
Quarter: 2005Q1

REPORT INFORMATION
  Report Type: 
  Country: None (occurrence: None)
  Receive Date: 20050302
  Receipt Date: 20050218
  Transmission Date: 20050727
  Serious: Yes (Other)
  Sender: FDA-Public Use
  Company Number: US-GLAXOSMITHKLINE-A0547620A

PATIENT
  Sex: Female

DRUGS (1)
  1. ADVAIR DISKUS 100/50 [Suspect]
     Indication: DRUG USE FOR UNKNOWN INDICATION
     Route: 055
     Dates: end: 20040101

REACTIONS (4)
  - CHOKING [None]
  - DYSPHAGIA [None]
  - OBSTRUCTIVE AIRWAYS DISORDER [None]
  - OROPHARYNGEAL SWELLING [None]
